FAERS Safety Report 21055841 (Version 5)
Quarter: 2023Q4

REPORT INFORMATION
  Report Type: Report from Study
  Country: US (occurrence: US)
  Receive Date: 20220708
  Receipt Date: 20231123
  Transmission Date: 20240110
  Serious: Yes (Other)
  Sender: FDA-Public Use
  Company Number: US-ABBVIE-22K-163-4460384-00

PATIENT
  Sex: Female

DRUGS (8)
  1. HUMIRA [Suspect]
     Active Substance: ADALIMUMAB
     Indication: Rheumatoid arthritis
     Dosage: CITRATE FREE
     Route: 058
  2. HUMIRA [Suspect]
     Active Substance: ADALIMUMAB
     Indication: Psoriatic arthropathy
     Dosage: CITRATE FREE, DOSING CHANGED
     Route: 058
     Dates: start: 20220201
  3. HUMIRA [Suspect]
     Active Substance: ADALIMUMAB
     Route: 058
     Dates: start: 20200201
  4. HUMIRA [Suspect]
     Active Substance: ADALIMUMAB
     Dosage: CITRATE FREE?LAST ADMIN DATE- FEB 2020
     Route: 058
     Dates: start: 20200201
  5. HUMIRA [Suspect]
     Active Substance: ADALIMUMAB
     Indication: Rheumatoid arthritis
     Dosage: FORM STRENGTH: 40 MG
     Route: 058
     Dates: start: 20200215
  6. HUMIRA [Suspect]
     Active Substance: ADALIMUMAB
     Indication: Psoriatic arthropathy
  7. MODERNA COVID-19 VACCINE [Concomitant]
     Active Substance: ELASOMERAN
     Indication: COVID-19 immunisation
     Dosage: TIME INTERVAL: 1 TOTAL: FIRST DOSE ONE IN ONCE
     Route: 030
     Dates: start: 20210205, end: 20210205
  8. MODERNA COVID-19 VACCINE [Concomitant]
     Active Substance: ELASOMERAN
     Indication: COVID-19 immunisation
     Dosage: TIME INTERVAL: 1 TOTAL: SECOND DOSE, ONE IN ONCE
     Route: 030
     Dates: start: 20210304, end: 20210304

REACTIONS (19)
  - Breast reconstruction [Recovering/Resolving]
  - Systemic lupus erythematosus [Unknown]
  - Sinusitis [Unknown]
  - Glomerular filtration rate abnormal [Unknown]
  - Hypertension [Unknown]
  - Fatigue [Recovering/Resolving]
  - Urinary tract infection [Unknown]
  - Sjogren^s syndrome [Unknown]
  - Arthropathy [Unknown]
  - Rheumatoid arthritis [Recovering/Resolving]
  - Migraine [Unknown]
  - Lung disorder [Unknown]
  - Stress [Recovering/Resolving]
  - Illness [Unknown]
  - Blood creatinine abnormal [Unknown]
  - Hypothyroidism [Unknown]
  - Psoriasis [Unknown]
  - Systemic lupus erythematosus [Unknown]
  - Chronic obstructive pulmonary disease [Unknown]

NARRATIVE: CASE EVENT DATE: 20220101
